FAERS Safety Report 17549327 (Version 2)
Quarter: 2020Q2

REPORT INFORMATION
  Report Type: Report from Study
  Country: None (occurrence: US)
  Receive Date: 20200317
  Receipt Date: 20200420
  Transmission Date: 20200713
  Serious: Yes (Hospitalization, Other)
  Sender: FDA-Public Use
  Company Number: US-ABBVIE-20K-163-3322225-00

PATIENT
  Age: 66 Year
  Sex: Male
  Weight: 145.28 kg

DRUGS (1)
  1. HUMIRA [Suspect]
     Active Substance: ADALIMUMAB
     Indication: COLITIS ULCERATIVE
     Route: 058
     Dates: end: 202003

REACTIONS (6)
  - Pruritus [Unknown]
  - Immunodeficiency [Unknown]
  - Ligament rupture [Unknown]
  - Meniscus injury [Recovered/Resolved]
  - Coronary arterial stent insertion [Recovered/Resolved]
  - Headache [Recovered/Resolved]

NARRATIVE: CASE EVENT DATE: 2019
